FAERS Safety Report 5031789-9 (Version None)
Quarter: 2006Q2

REPORT INFORMATION
  Report Type: 
  Country: None (occurrence: None)
  Receive Date: 20060616
  Receipt Date: 20060608
  Transmission Date: 20061013
  Serious: Yes (Hospitalization)
  Sender: FDA-Public Use
  Company Number: BR-2006-013558

PATIENT
  Age: 79 Year
  Sex: Female
  Weight: 69 kg

DRUGS (1)
  1. ANGELIQ [Suspect]
     Indication: MENOPAUSAL SYMPTOMS
     Dosage: 1 TAB(S), ORAL
     Route: 048
     Dates: start: 20060512, end: 20060519

REACTIONS (2)
  - CONTRAINDICATION TO MEDICAL TREATMENT [None]
  - HYPERTENSIVE CRISIS [None]
